FAERS Safety Report 7599174-3 (Version None)
Quarter: 2011Q3

REPORT INFORMATION
  Report Type: 
  Country: None (occurrence: None)
  Receive Date: 20110711
  Receipt Date: 20110616
  Transmission Date: 20111222
  Serious: Yes (Other)
  Sender: FDA-Public Use
  Company Number: US-BAYER-201028306NA

PATIENT
  Age: 40 Year
  Sex: Female
  Weight: 84 kg

DRUGS (10)
  1. YASMIN [Suspect]
     Indication: PRODUCT USED FOR UNKNOWN INDICATION
     Route: 048
  2. VERAMYST [Concomitant]
  3. ZITHROMAX [Concomitant]
     Route: 048
  4. ADVAIR DISKUS 100/50 [Concomitant]
     Indication: PNEUMONIA
  5. YAZ [Suspect]
     Indication: PREMENSTRUAL SYNDROME
  6. ANTIBIOTICS [Concomitant]
     Indication: SINUSITIS
  7. PRILOSEC [Concomitant]
     Indication: GASTROOESOPHAGEAL REFLUX DISEASE
     Dosage: UNK
     Route: 048
     Dates: start: 20060809
  8. ZOLOFT [Concomitant]
     Route: 048
  9. SERTRALINE HYDROCHLORIDE [Concomitant]
     Dosage: UNK
     Dates: start: 20071112
  10. YAZ [Suspect]
     Indication: CONTRACEPTION
     Route: 048

REACTIONS (1)
  - DEEP VEIN THROMBOSIS [None]
